FAERS Safety Report 19812631 (Version 2)
Quarter: 2021Q4

REPORT INFORMATION
  Report Type: Report from Study
  Country: JP (occurrence: JP)
  Receive Date: 20210909
  Receipt Date: 20211105
  Transmission Date: 20220303
  Serious: Yes (Life-Threatening, Hospitalization)
  Sender: FDA-Public Use
  Company Number: JP-BAYER-2021-207680

PATIENT
  Age: 73 Year
  Sex: Male
  Weight: 68.2 kg

DRUGS (9)
  1. DAROLUTAMIDE [Suspect]
     Active Substance: DAROLUTAMIDE
     Indication: Hormone-refractory prostate cancer
     Dosage: 600 MG, BID
     Dates: start: 20210304
  2. DEGARELIX [Concomitant]
     Active Substance: DEGARELIX
     Indication: Hormone-refractory prostate cancer
     Dosage: 80 MG, Q4WK
     Dates: start: 20200522
  3. BISOPROLOL FUMARATE [Concomitant]
     Active Substance: BISOPROLOL FUMARATE
     Indication: Angina pectoris
     Dosage: UNK
     Dates: start: 20200331
  4. ATORVASTATIN [Concomitant]
     Active Substance: ATORVASTATIN
     Indication: Dyslipidaemia
     Dosage: UNK
     Dates: start: 20200331
  5. LINAGLIPTIN [Concomitant]
     Active Substance: LINAGLIPTIN
     Indication: Diabetes mellitus
     Dosage: UNK
     Dates: start: 20200331
  6. ASPIRIN [Concomitant]
     Active Substance: ASPIRIN
     Indication: Angina pectoris
     Dosage: UNK
     Dates: start: 20200331
  7. CLOPIDOGREL [Concomitant]
     Active Substance: CLOPIDOGREL BISULFATE
     Indication: Peripheral artery occlusion
     Dosage: UNK
     Dates: start: 20200331
  8. AMLODIPINE [Concomitant]
     Active Substance: AMLODIPINE BESYLATE
     Indication: Hypertension
     Dosage: UNK
     Dates: start: 20200331
  9. KAYEXALATE [Concomitant]
     Active Substance: SODIUM POLYSTYRENE SULFONATE
     Indication: Chronic kidney disease
     Dosage: UNK
     Dates: start: 20200331

REACTIONS (1)
  - Diabetic nephropathy [Not Recovered/Not Resolved]

NARRATIVE: CASE EVENT DATE: 20210901
